FAERS Safety Report 4070706 (Version 3)
Quarter: 2019Q2

REPORT INFORMATION
  Report Type: Spontaneous
  Country: DE (occurrence: DE)
  Receive Date: 20040123
  Receipt Date: 20190408
  Transmission Date: 20190711
  Serious: Yes (Hospitalization)
  Sender: FDA-Public Use
  Company Number: DE-ROCHE-355975

PATIENT
  Age: 74 Year
  Sex: Male
  Weight: 98 kg

DRUGS (1)
  1. TAMIFLU [Suspect]
     Active Substance: OSELTAMIVIR PHOSPHATE
     Indication: INFECTION
     Route: 048
     Dates: start: 20031229, end: 20031231

REACTIONS (1)
  - Angioedema [Not Recovered/Not Resolved]

NARRATIVE: CASE EVENT DATE: 20031230
